FAERS Safety Report 4644013-3 (Version None)
Quarter: 2005Q1

REPORT INFORMATION
  Report Type: 
  Country: None (occurrence: None)
  Receive Date: 20050331
  Receipt Date: 20041220
  Transmission Date: 20050727
  Serious: Yes (Hospitalization)
  Sender: FDA-Public Use
  Company Number: 04P-163-0283958-00

PATIENT
  Age: 60 Year
  Sex: Female
  Weight: 77.5651 kg

DRUGS (15)
  1. HUMIRA [Suspect]
     Indication: RHEUMATOID ARTHRITIS
     Dosage: 40 MG, 1 IN 2 WK, SUBCUTANEOUS
     Route: 058
     Dates: start: 20031201
  2. ESOMEPRAZOLE [Concomitant]
  3. LORAZEPAM [Concomitant]
  4. METOPROLOL TARTRATE [Concomitant]
  5. ASPIRIN [Concomitant]
  6. PENTAZOCINE LACTATE [Concomitant]
  7. SERTRALINE HYDROCHLORIDE [Concomitant]
  8. FUROSEMIDE [Concomitant]
  9. POTASSIUM CHLORIDE [Concomitant]
  10. ZOCOR [Concomitant]
  11. FOLIC ACID [Concomitant]
  12. MULTI-VITAMINS [Concomitant]
  13. TOCOPHEROL CONCENTRATE CAP [Concomitant]
  14. CALCIUM GLUCONATE [Concomitant]
  15. ASCORBIC ACID [Concomitant]

REACTIONS (1)
  - MYOCARDIAL INFARCTION [None]
